FAERS Safety Report 9027255 (Version 1)
Quarter: 2013Q1

REPORT INFORMATION
  Report Type: Spontaneous
  Country: GR (occurrence: GR)
  Receive Date: 20130123
  Receipt Date: 20130123
  Transmission Date: 20140127
  Serious: Yes (Other)
  Sender: FDA-Public Use
  Company Number: GR-VERTEX PHARMACEUTICALS INC.-2012-026675

PATIENT
  Sex: Male

DRUGS (3)
  1. INCIVO [Suspect]
     Indication: HEPATITIS C
     Dosage: DOSAGE FORM: TABLET
     Route: 048
  2. RIBAVIRIN [Concomitant]
     Route: 065
  3. PEG-INTERFERON [Concomitant]
     Route: 065

REACTIONS (4)
  - Decreased appetite [Unknown]
  - Catabolic state [Unknown]
  - Anaemia [Unknown]
  - Dysgeusia [Unknown]
